FAERS Safety Report 10026656 (Version 1)
Quarter: 2014Q1

REPORT INFORMATION
  Report Type: Spontaneous
  Country: FR (occurrence: FR)
  Receive Date: 20140321
  Receipt Date: 20140321
  Transmission Date: 20141002
  Serious: Yes (Other)
  Sender: FDA-Public Use
  Company Number: FR-ROCHE-1367188

PATIENT
  Age: 35 Year
  Sex: Female

DRUGS (7)
  1. XOLAIR [Suspect]
     Indication: ASTHMA
     Route: 065
     Dates: start: 20111208
  2. SERETIDE [Concomitant]
     Route: 065
     Dates: start: 2011
  3. SPIRIVA [Concomitant]
     Route: 065
     Dates: start: 2011
  4. CETIRIZINE [Concomitant]
  5. LANTUS [Concomitant]
  6. HUMALOG [Concomitant]
  7. LEVOTHYROX [Concomitant]

REACTIONS (2)
  - Premature labour [Unknown]
  - Maternal exposure during pregnancy [Unknown]
